FAERS Safety Report 6535212-4 (Version None)
Quarter: 2009Q4

REPORT INFORMATION
  Report Type: 
  Country: None (occurrence: None)
  Receive Date: 20091231
  Receipt Date: 20090724
  Transmission Date: 20100525
  Serious: Yes (Disabling)
  Sender: FDA-Public Use
  Company Number: APP200900543

PATIENT
  Sex: Male

DRUGS (2)
  1. SENSORCAINE [Suspect]
     Indication: MUSCULOSKELETAL PAIN
     Dosage: CONTINUOUS VIA PUMP, INTRA-ARTICULAR
     Route: 014
     Dates: start: 20080410
  2. NAROPIN [Suspect]
     Indication: MUSCULOSKELETAL PAIN
     Dosage: CONTINUOUS VIA PUMP, INTRA-ARTICULAR
     Route: 013
     Dates: start: 20080410

REACTIONS (2)
  - CHONDROLYSIS [None]
  - MUSCULOSKELETAL PAIN [None]
